FAERS Safety Report 8156338-8 (Version None)
Quarter: 2012Q1

REPORT INFORMATION
  Report Type: 
  Country: None (occurrence: None)
  Receive Date: 20120222
  Receipt Date: 20120220
  Transmission Date: 20120608
  Serious: No
  Sender: FDA-Public Use
  Company Number: US-PFIZER INC-2012044791

PATIENT
  Sex: Male

DRUGS (2)
  1. LYRICA [Suspect]
     Dosage: 50 MG, 4X/DAY
  2. LYRICA [Suspect]
     Dosage: 50 MG, 3X/DAY

REACTIONS (2)
  - PARAESTHESIA [None]
  - BURNING SENSATION [None]
